FAERS Safety Report 24277386 (Version 2)
Quarter: 2024Q4

REPORT INFORMATION
  Report Type: Spontaneous
  Country: JP (occurrence: JP)
  Receive Date: 20240903
  Receipt Date: 20241108
  Transmission Date: 20250114
  Serious: Yes (Hospitalization, Other)
  Sender: SANOFI AVENTIS
  Company Number: JP-SA-2024SA255008

PATIENT
  Age: 66 Year
  Sex: Female

DRUGS (6)
  1. OXALIPLATIN [Suspect]
     Active Substance: OXALIPLATIN
     Indication: Gastric cancer
     Dosage: UNK UNK, QCY (FIRST COURSE)
  2. OXALIPLATIN [Suspect]
     Active Substance: OXALIPLATIN
     Indication: Metastases to peritoneum
  3. TS-1 [Suspect]
     Active Substance: GIMERACIL\OTERACIL POTASSIUM\TEGAFUR
     Indication: Gastric cancer
     Dosage: UNK UNK, QCY (FIRST COURSE)
  4. TS-1 [Suspect]
     Active Substance: GIMERACIL\OTERACIL POTASSIUM\TEGAFUR
     Indication: Metastases to peritoneum
  5. NIVOLUMAB [Suspect]
     Active Substance: NIVOLUMAB
     Indication: Gastric cancer
     Dosage: UNK UNK, QCY (FIRST COURSE)
  6. NIVOLUMAB [Suspect]
     Active Substance: NIVOLUMAB
     Indication: Metastases to peritoneum

REACTIONS (6)
  - Gastric perforation [Unknown]
  - Pyrexia [Unknown]
  - Abdominal pain [Unknown]
  - Fluid retention [Unknown]
  - Decreased appetite [Unknown]
  - Flatulence [Unknown]
